FAERS Safety Report 5697869-X (Version None)
Quarter: 2008Q2

REPORT INFORMATION
  Report Type: 
  Country: None (occurrence: None)
  Receive Date: 20080404
  Receipt Date: 20080404
  Transmission Date: 20081010
  Serious: Yes (Hospitalization, Other)
  Sender: FDA-Public Use
  Company Number: None

PATIENT
  Age: 69 Year
  Sex: Female

DRUGS (10)
  1. MACROBID [Suspect]
     Dosage: 100MG PO BID
     Route: 048
     Dates: start: 20040410
  2. LIPITOR [Concomitant]
  3. NORVASC [Concomitant]
  4. METOPROLOL TARTRATE [Concomitant]
  5. MAXZIDE [Concomitant]
  6. ASPIRIN [Concomitant]
  7. PROTONIX/PRILOSEC [Concomitant]
  8. SYNTHROID [Concomitant]
  9. POTASSIUM (K-LOR) [Concomitant]
  10. CIPROFLOXACIN [Concomitant]

REACTIONS (4)
  - AUTOIMMUNE HEPATITIS [None]
  - HEPATIC ENCEPHALOPATHY [None]
  - LIVER INJURY [None]
  - PELVIC FLOOR REPAIR [None]
